FAERS Safety Report 12627912 (Version 1)
Quarter: 2016Q3

REPORT INFORMATION
  Report Type: Spontaneous
  Country: GB (occurrence: GB)
  Receive Date: 20160807
  Receipt Date: 20160807
  Transmission Date: 20161109
  Serious: Yes (Hospitalization)
  Sender: FDA-Public Use
  Company Number: GB-TEVA-681076ACC

PATIENT
  Age: 80 Year
  Sex: Female

DRUGS (9)
  1. PREDNISOLONE. [Suspect]
     Active Substance: PREDNISOLONE
     Indication: RHEUMATOID ARTHRITIS
     Dosage: 15 MILLIGRAM DAILY; 15 MG EVERY MORNING
     Route: 048
  2. ENOXAPARIN [Concomitant]
     Active Substance: ENOXAPARIN
     Dosage: 60MG/0.6ML UNTIL INR WITHIN RANGE,SOLUTION FOR INJECTION IN PRE-FILLED SYRINGE
     Route: 058
  3. FENBID [Concomitant]
     Active Substance: IBUPROFEN
     Route: 061
  4. WARFARIN [Concomitant]
     Active Substance: WARFARIN
     Indication: DEEP VEIN THROMBOSIS
     Dosage: AS PER INR BOOKLET
     Route: 048
  5. DIHYDROCODEINE [Concomitant]
     Active Substance: DIHYDROCODEINE
     Dosage: 30MG - 60MG THREE TIMES A DAY
     Route: 048
  6. PREDNISOLONE. [Suspect]
     Active Substance: PREDNISOLONE
     Dosage: 10 MILLIGRAM DAILY; EVERY MORNING OM, 10 MG DAILY
     Route: 048
     Dates: start: 20160520
  7. LANSOPRAZOLE. [Concomitant]
     Active Substance: LANSOPRAZOLE
     Dosage: 30 MILLIGRAM DAILY; GASTRO-RESISTANT CAPSULE, 30 MG DAILY
     Route: 048
  8. PARACETAMOL [Concomitant]
     Active Substance: ACETAMINOPHEN
     Dosage: 4 GRAM DAILY;
     Route: 048
  9. AMLODIPINE [Suspect]
     Active Substance: AMLODIPINE BESYLATE

REACTIONS (5)
  - Acute kidney injury [Recovered/Resolved]
  - Joint swelling [Unknown]
  - Polyarthritis [Unknown]
  - Peripheral swelling [Unknown]
  - International normalised ratio increased [Recovered/Resolved]
